FAERS Safety Report 10084668 (Version 1)
Quarter: 2014Q2

REPORT INFORMATION
  Report Type: Spontaneous
  Country: US (occurrence: US)
  Receive Date: 20140417
  Receipt Date: 20140417
  Transmission Date: 20141212
  Serious: Yes (Other)
  Sender: FDA-Public Use
  Company Number: US-BAYER-2014-054255

PATIENT
  Age: 59 Year
  Sex: Male

DRUGS (4)
  1. AVELOX [Suspect]
     Indication: BRONCHITIS
     Dosage: 400 MG, QD
     Route: 048
     Dates: start: 20110503, end: 20110507
  2. AVELOX [Suspect]
     Indication: PNEUMONIA
  3. AVELOX [Suspect]
     Indication: FEELING COLD
  4. OMEPRAZOLE [Concomitant]
     Indication: GASTROOESOPHAGEAL REFLUX DISEASE

REACTIONS (12)
  - Parkinson^s disease [None]
  - Mental impairment [None]
  - Muscle spasms [None]
  - Tendon pain [None]
  - Pain in extremity [None]
  - Palpitations [None]
  - Amnesia [None]
  - Insomnia [None]
  - Anxiety [None]
  - Nervousness [None]
  - Chills [None]
  - Tremor [None]
